FAERS Safety Report 23736109 (Version 1)
Quarter: 2024Q2

REPORT INFORMATION
  Report Type: Spontaneous
  Country: FR (occurrence: FR)
  Receive Date: 20240412
  Receipt Date: 20240412
  Transmission Date: 20240716
  Serious: Yes (Hospitalization)
  Sender: FDA-Public Use
  Company Number: None

PATIENT
  Age: 76 Year
  Sex: Male

DRUGS (6)
  1. BETAMETHASONE DIPROPIONATE\BETAMETHASONE SODIUM PHOSPHATE [Suspect]
     Active Substance: BETAMETHASONE DIPROPIONATE\BETAMETHASONE SODIUM PHOSPHATE
     Indication: Osteoarthritis
     Route: 014
     Dates: start: 20230123, end: 20230123
  2. ELIQUIS [Concomitant]
     Active Substance: APIXABAN
  3. RAMIPRIL [Concomitant]
     Active Substance: RAMIPRIL
  4. INSPRA [Concomitant]
     Active Substance: EPLERENONE
  5. ATORVASTATIN [Concomitant]
     Active Substance: ATORVASTATIN
  6. ATENOLOL [Concomitant]
     Active Substance: ATENOLOL

REACTIONS (6)
  - Vomiting [Recovered/Resolved]
  - Tremor [Recovered/Resolved]
  - Hot flush [Recovered/Resolved]
  - Malaise [Recovered/Resolved]
  - Erythema [Recovered/Resolved]
  - Pharyngeal oedema [Recovered/Resolved]

NARRATIVE: CASE EVENT DATE: 20230123
